FAERS Safety Report 15525853 (Version 1)
Quarter: 2018Q4

REPORT INFORMATION
  Report Type: Spontaneous
  Country: ES (occurrence: ES)
  Receive Date: 20181019
  Receipt Date: 20181019
  Transmission Date: 20190205
  Serious: Yes (Life-Threatening, Hospitalization, Other)
  Sender: FDA-Public Use
  Company Number: ES-TEVA-2018-ES-966528

PATIENT
  Age: 52 Year
  Sex: Female

DRUGS (5)
  1. TOPIRAMATO (7245A) [Interacting]
     Active Substance: TOPIRAMATE
     Indication: SUICIDE ATTEMPT
     Route: 048
     Dates: start: 20180825, end: 20180825
  2. DIAZEPAM (730A) [Interacting]
     Active Substance: DIAZEPAM
     Indication: SUICIDE ATTEMPT
     Route: 048
     Dates: start: 20180825, end: 20180825
  3. MIRTAZAPINA (2704A) [Suspect]
     Active Substance: MIRTAZAPINE
     Indication: SUICIDE ATTEMPT
     Route: 048
     Dates: start: 20180825, end: 20180825
  4. QUETIAPINA (1136A) [Interacting]
     Active Substance: QUETIAPINE
     Indication: SUICIDE ATTEMPT
     Route: 048
     Dates: start: 20180825, end: 20180825
  5. DESVENLAFAXINA SUCCINATO MONOHIDRATO (8296LY) [Interacting]
     Active Substance: DESVENLAFAXINE SUCCINATE
     Indication: SUICIDE ATTEMPT
     Route: 048
     Dates: start: 20180825, end: 20180825

REACTIONS (2)
  - Depressed level of consciousness [Recovered/Resolved]
  - Drug interaction [Unknown]

NARRATIVE: CASE EVENT DATE: 20180825
